FAERS Safety Report 8561333-0 (Version None)
Quarter: 2012Q3

REPORT INFORMATION
  Report Type: 
  Country: None (occurrence: None)
  Receive Date: 20120802
  Receipt Date: 20120724
  Transmission Date: 20120928
  Serious: Yes (Other)
  Sender: FDA-Public Use
  Company Number: US-ASTRAZENECA-2012SE24457

PATIENT
  Age: 32 Year
  Sex: Male
  Weight: 81.6 kg

DRUGS (8)
  1. SEROQUEL [Suspect]
     Route: 048
  2. SEROQUEL [Suspect]
     Route: 048
  3. HALCION [Concomitant]
     Indication: SLEEP DISORDER
     Dosage: UNKNOWN DOSE AS REQUIRED
  4. SEROQUEL [Suspect]
     Indication: BIPOLAR I DISORDER
     Route: 048
     Dates: start: 20030101
  5. SEROQUEL [Suspect]
     Route: 048
  6. XANAX [Concomitant]
  7. SEROQUEL [Suspect]
     Dosage: VARIOUS DOSAGES
     Route: 048
  8. SEROQUEL [Suspect]
     Dosage: 600 MG OR 800 MG
     Route: 048

REACTIONS (14)
  - INSOMNIA [None]
  - HALLUCINATION [None]
  - AGGRESSION [None]
  - ACTIVITIES OF DAILY LIVING IMPAIRED [None]
  - MALAISE [None]
  - LOSS OF CONSCIOUSNESS [None]
  - INTENTIONAL DRUG MISUSE [None]
  - DELIRIUM [None]
  - ADVERSE EVENT [None]
  - PHYSICAL ASSAULT [None]
  - DRUG DOSE OMISSION [None]
  - AGITATION [None]
  - FLASHBACK [None]
  - NERVOUSNESS [None]
